FAERS Safety Report 15698583 (Version 1)
Quarter: 2018Q4

REPORT INFORMATION
  Report Type: Spontaneous
  Country: US (occurrence: US)
  Receive Date: 20181126
  Receipt Date: 20181126
  Transmission Date: 20190205
  Serious: Yes (Hospitalization)
  Sender: FDA-Public Use
  Company Number: None

PATIENT
  Age: 52 Year
  Sex: Male
  Weight: 78 kg

DRUGS (3)
  1. G-CSF (FILGRASTIM, AMGEN )(614629) [Suspect]
     Active Substance: FILGRASTIM
     Dates: end: 20181113
  2. TAXOL [Suspect]
     Active Substance: PACLITAXEL
     Dates: end: 20181109
  3. IFOSFAMIDE. [Suspect]
     Active Substance: IFOSFAMIDE
     Dates: end: 20181111

REACTIONS (3)
  - Fluid overload [None]
  - Blood creatine increased [None]
  - Weight increased [None]

NARRATIVE: CASE EVENT DATE: 20181114
